FAERS Safety Report 6706941-4 (Version None)
Quarter: 2010Q2

REPORT INFORMATION
  Report Type: 
  Country: None (occurrence: None)
  Receive Date: 20100503
  Receipt Date: 20100423
  Transmission Date: 20101027
  Serious: Yes (Hospitalization, Other)
  Sender: FDA-Public Use
  Company Number: JP-ROCHE-700002

PATIENT
  Sex: Female

DRUGS (11)
  1. CAPECITABINE [Suspect]
     Indication: COLON CANCER
     Route: 048
     Dates: start: 20090626, end: 20090706
  2. CAPECITABINE [Suspect]
     Dosage: DOSE DECREASED
     Route: 048
     Dates: start: 20090711, end: 20090713
  3. CAPECITABINE [Suspect]
     Route: 048
     Dates: start: 20090724, end: 20090806
  4. CAPECITABINE [Suspect]
     Route: 048
     Dates: start: 20090814, end: 20090827
  5. CAPECITABINE [Suspect]
     Route: 048
     Dates: start: 20090904, end: 20090917
  6. CAPECITABINE [Suspect]
     Route: 048
     Dates: start: 20090925, end: 20091008
  7. CAPECITABINE [Suspect]
     Route: 048
     Dates: start: 20091016, end: 20091029
  8. UBRETID [Concomitant]
     Route: 048
     Dates: start: 20090518
  9. FERROMIA [Concomitant]
     Dosage: FORM: PER ORAL AGENT
     Route: 048
     Dates: start: 20090615, end: 20091103
  10. PYDOXAL [Concomitant]
     Dosage: PYDOXAL TAB
     Route: 048
     Dates: start: 20090626, end: 20091108
  11. EBRANTIL [Concomitant]
     Route: 048
     Dates: start: 20090824

REACTIONS (6)
  - ANASTOMOTIC STENOSIS [None]
  - DECREASED APPETITE [None]
  - DEHYDRATION [None]
  - DIARRHOEA [None]
  - NAUSEA [None]
  - PALMAR-PLANTAR ERYTHRODYSAESTHESIA SYNDROME [None]
